FAERS Safety Report 7569352-8 (Version None)
Quarter: 2011Q2

REPORT INFORMATION
  Report Type: 
  Country: None (occurrence: None)
  Receive Date: 20110623
  Receipt Date: 20110616
  Transmission Date: 20111010
  Serious: Yes (Death, Hospitalization)
  Sender: FDA-Public Use
  Company Number: JP-PFIZER INC-2011088586

PATIENT
  Age: 72 Year
  Sex: Male

DRUGS (3)
  1. ESTRACYT [Suspect]
     Indication: PROSTATE CANCER
     Dosage: 626.8 MG/DAY
     Route: 048
     Dates: start: 20091216, end: 20110412
  2. DECADRON [Concomitant]
     Indication: PROSTATE CANCER
     Dosage: 1 MG/DAY
     Route: 048
     Dates: start: 20091216, end: 20110412
  3. TAXOL [Suspect]
     Indication: PROSTATE CANCER
     Dosage: 40 MG/DAY
     Route: 041
     Dates: start: 20091216, end: 20110412

REACTIONS (2)
  - PLEURAL EFFUSION [None]
  - INTERSTITIAL LUNG DISEASE [None]
